FAERS Safety Report 22355049 (Version 2)
Quarter: 2023Q2

REPORT INFORMATION
  Report Type: Report from Study
  Country: DE (occurrence: DE)
  Receive Date: 20230523
  Receipt Date: 20230531
  Transmission Date: 20230721
  Serious: Yes (Hospitalization)
  Sender: FDA-Public Use
  Company Number: DE-JNJFOC-20190610146

PATIENT
  Sex: Male

DRUGS (7)
  1. SIMPONI [Suspect]
     Active Substance: GOLIMUMAB
     Indication: Ankylosing spondylitis
     Route: 058
  2. SIMPONI [Suspect]
     Active Substance: GOLIMUMAB
     Indication: Axial spondyloarthritis
     Dosage: THERAPY DATE:15/JUL/2022
     Route: 058
  3. ASPIRIN [Concomitant]
     Active Substance: ASPIRIN
  4. METFORMIN [Concomitant]
     Active Substance: METFORMIN HYDROCHLORIDE
  5. VALSARTAN [Concomitant]
     Active Substance: VALSARTAN
  6. ALLOPURINOL [Concomitant]
     Active Substance: ALLOPURINOL
  7. NAPROXEN [Concomitant]
     Active Substance: NAPROXEN
     Dates: start: 20210908

REACTIONS (8)
  - Acute coronary syndrome [Recovered/Resolved]
  - Nasopharyngitis [Unknown]
  - Neck pain [Unknown]
  - Dry skin [Unknown]
  - Cough [Unknown]
  - Influenza like illness [Unknown]
  - Skin discolouration [Unknown]
  - COVID-19 [Unknown]

NARRATIVE: CASE EVENT DATE: 20180907
